FAERS Safety Report 6138258-3 (Version None)
Quarter: 2009Q1

REPORT INFORMATION
  Report Type: 
  Country: None (occurrence: None)
  Receive Date: 20090331
  Receipt Date: 20090324
  Transmission Date: 20090719
  Serious: Yes (Hospitalization)
  Sender: FDA-Public Use
  Company Number: B0564485A

PATIENT
  Age: 62 Year
  Sex: Male

DRUGS (7)
  1. SEREVENT [Suspect]
     Indication: ASTHMA
     Route: 055
     Dates: start: 19971024, end: 19971030
  2. PNEUMOVAX II [Suspect]
     Route: 030
     Dates: start: 19971024, end: 19971024
  3. PHYLLOCONTIN [Concomitant]
     Indication: ASTHMA
     Route: 048
  4. SALBUTAMOL [Concomitant]
     Indication: ASTHMA
  5. PREDNISOLONE [Concomitant]
     Route: 048
     Dates: start: 19971009
  6. IPRATROPIUM BROMIDE [Concomitant]
     Indication: ASTHMA
  7. BECONASE [Concomitant]
     Dosage: 2000MCG PER DAY

REACTIONS (10)
  - CHEST PAIN [None]
  - COUGH [None]
  - DYSPNOEA [None]
  - MALAISE [None]
  - MOOD ALTERED [None]
  - MUSCLE SPASMS [None]
  - MUSCULOSKELETAL STIFFNESS [None]
  - PALPITATIONS [None]
  - PRURITUS [None]
  - TREMOR [None]
